FAERS Safety Report 21327231 (Version 3)
Quarter: 2022Q4

REPORT INFORMATION
  Report Type: Spontaneous
  Country: CA (occurrence: CA)
  Receive Date: 20220913
  Receipt Date: 20221108
  Transmission Date: 20230113
  Serious: Yes (Hospitalization, Other)
  Sender: FDA-Public Use
  Company Number: CA-BEH-2022149429

PATIENT
  Age: 62 Year
  Sex: Female

DRUGS (3)
  1. ALBUREX [Suspect]
     Active Substance: ALBUMIN HUMAN
     Indication: Hypovolaemia
     Dosage: 4/4 FRACTION, TOT
     Route: 065
     Dates: start: 20220627, end: 20220627
  2. HUMAN RED BLOOD CELL [Concomitant]
     Active Substance: HUMAN RED BLOOD CELL
     Dosage: UNK
     Dates: start: 20220627, end: 20220627
  3. METHOTREXATE [Suspect]
     Active Substance: METHOTREXATE
     Indication: Psoriatic arthropathy
     Dosage: UNK
     Route: 065

REACTIONS (6)
  - Pyrexia [Unknown]
  - Multiple organ dysfunction syndrome [Fatal]
  - Pancytopenia [Fatal]
  - Toxicity to various agents [Fatal]
  - Acute kidney injury [Fatal]
  - Psoriatic arthropathy [Fatal]

NARRATIVE: CASE EVENT DATE: 20220627
